FAERS Safety Report 9463001 (Version 2)
Quarter: 2013Q3

REPORT INFORMATION
  Report Type: Report from Study
  Country: DE (occurrence: DE)
  Receive Date: 20130816
  Receipt Date: 20130816
  Transmission Date: 20140515
  Serious: Yes (Hospitalization)
  Sender: FDA-Public Use
  Company Number: DE-ABBOTT-13P-062-1121303-00

PATIENT
  Sex: Male

DRUGS (4)
  1. TRENANTONE (LEUPRORELIN ACETATE) [Suspect]
     Indication: PROSTATE CANCER
     Route: 058
     Dates: start: 20121031
  2. ALPHA BLOCKING AGENT [Concomitant]
     Indication: PRODUCT USED FOR UNKNOWN INDICATION
  3. ASA [Concomitant]
     Indication: PRODUCT USED FOR UNKNOWN INDICATION
  4. ANTIANDROGENS [Concomitant]
     Indication: PRODUCT USED FOR UNKNOWN INDICATION

REACTIONS (1)
  - Residual urine volume increased [Unknown]
